FAERS Safety Report 10984190 (Version 1)
Quarter: 2015Q2

REPORT INFORMATION
  Report Type: Report from Study
  Country: US (occurrence: US)
  Receive Date: 20150403
  Receipt Date: 20150403
  Transmission Date: 20150821
  Serious: Yes (Death)
  Sender: FDA-Public Use
  Company Number: US-TAKEDA-2015TUS003695

PATIENT
  Age: 69 Year
  Sex: Male
  Weight: 119 kg

DRUGS (2)
  1. BLINDED NALTREXONE, BUPROPION [Suspect]
     Active Substance: BUPROPION HYDROCHLORIDE\NALTREXONE HYDROCHLORIDE
     Indication: OBESITY
     Dosage: UNK
     Route: 048
     Dates: start: 20121005, end: 20130118
  2. PLACEBO [Suspect]
     Active Substance: UNSPECIFIED INGREDIENT
     Indication: OBESITY
     Dosage: UNK
     Route: 048
     Dates: start: 20121005, end: 20130118

REACTIONS (1)
  - Death [Fatal]

NARRATIVE: CASE EVENT DATE: 20131215
